FAERS Safety Report 9330163 (Version 2)
Quarter: 2013Q4

REPORT INFORMATION
  Report Type: Spontaneous
  Country: US (occurrence: US)
  Receive Date: 20130604
  Receipt Date: 20131018
  Transmission Date: 20140711
  Serious: Yes (Hospitalization)
  Sender: FDA-Public Use
  Company Number: US-B.I. PHARMACEUTICALS,INC./RIDGEFIELD-2013-BI-15439BP

PATIENT
  Sex: Female
  Weight: 56.7 kg

DRUGS (5)
  1. PRADAXA [Suspect]
     Indication: ATRIAL FIBRILLATION
     Dosage: 300 MG
     Route: 048
     Dates: start: 20110815, end: 20120123
  2. DILTIAZEM [Concomitant]
     Dosage: 60 MG
     Route: 048
  3. OMEPRAZOLE [Concomitant]
     Dosage: 40 MG
     Route: 048
  4. LOVASTATIN [Concomitant]
     Dosage: 20 MG
     Route: 048
  5. AMBIEN [Concomitant]
     Indication: INSOMNIA
     Route: 048

REACTIONS (2)
  - Gastrointestinal haemorrhage [Unknown]
  - Anaemia [Unknown]
